FAERS Safety Report 15357715 (Version 1)
Quarter: 2018Q3

REPORT INFORMATION
  Report Type: Report from Study
  Country: CA (occurrence: CA)
  Receive Date: 20180906
  Receipt Date: 20180906
  Transmission Date: 20181010
  Serious: Yes (Death)
  Sender: FDA-Public Use
  Company Number: CA-ACTELION-A-NJ2018-178017

PATIENT
  Age: 54 Year
  Sex: Female

DRUGS (11)
  1. IVIGLOB EX [Concomitant]
     Active Substance: HUMAN IMMUNOGLOBULIN G
     Dosage: UNK, Q1MONTH
  2. PREDNISONE. [Concomitant]
     Active Substance: PREDNISONE
  3. ACETONAL [Concomitant]
  4. CARVEDIOL [Concomitant]
     Active Substance: CARVEDILOL
  5. OPSUMIT [Suspect]
     Active Substance: MACITENTAN
     Indication: PULMONARY ARTERIAL HYPERTENSION
     Dosage: 10 MG, UNK
     Route: 048
     Dates: start: 20180819
  6. ADCIRCA [Concomitant]
     Active Substance: TADALAFIL
  7. AZATHIOPRINE. [Concomitant]
     Active Substance: AZATHIOPRINE
  8. VITAMIN D [Concomitant]
     Active Substance: CHOLECALCIFEROL
  9. PANTOPRAZOLE [Concomitant]
     Active Substance: PANTOPRAZOLE
  10. VITAMIN B12 [Concomitant]
     Active Substance: CYANOCOBALAMIN
  11. HCTZ [Concomitant]
     Active Substance: HYDROCHLOROTHIAZIDE

REACTIONS (1)
  - Death [Fatal]

NARRATIVE: CASE EVENT DATE: 201808
